FAERS Safety Report 16620240 (Version 1)
Quarter: 2019Q3

REPORT INFORMATION
  Report Type: Spontaneous
  Country: US (occurrence: US)
  Receive Date: 20190723
  Receipt Date: 20190723
  Transmission Date: 20191004
  Serious: No
  Sender: FDA-Public Use
  Company Number: US-NEUROCRINE BIOSCIENCES INC.-2019NBI01943

PATIENT
  Age: 58 Year
  Sex: Male

DRUGS (8)
  1. BENADRYL [Concomitant]
     Active Substance: DIPHENHYDRAMINE HYDROCHLORIDE
  2. METFORMIN [Concomitant]
     Active Substance: METFORMIN HYDROCHLORIDE
  3. INGREZZA [Suspect]
     Active Substance: VALBENAZINE
     Indication: PRODUCT USED FOR UNKNOWN INDICATION
  4. GEODON [Concomitant]
     Active Substance: ZIPRASIDONE HYDROCHLORIDE\ZIPRASIDONE MESYLATE
  5. GABAPENTIN. [Concomitant]
     Active Substance: GABAPENTIN
  6. OMEPRAZOLE. [Concomitant]
     Active Substance: OMEPRAZOLE
  7. SIMVASTATIN. [Concomitant]
     Active Substance: SIMVASTATIN
  8. GEMFIBROZIL. [Concomitant]
     Active Substance: GEMFIBROZIL

REACTIONS (7)
  - Anal incontinence [Recovered/Resolved]
  - Aphasia [Recovered/Resolved]
  - Fatigue [Recovered/Resolved]
  - Mental impairment [Recovered/Resolved]
  - Urinary incontinence [Recovered/Resolved]
  - Mood swings [Recovered/Resolved]
  - Crying [Recovered/Resolved]
